FAERS Safety Report 12280085 (Version 2)
Quarter: 2016Q2

REPORT INFORMATION
  Report Type: Spontaneous
  Country: AT (occurrence: AT)
  Receive Date: 20160418
  Receipt Date: 20160426
  Transmission Date: 20160815
  Serious: Yes (Hospitalization, Other)
  Sender: FDA-Public Use
  Company Number: AT-AMGEN-AUTSP2016044839

PATIENT
  Age: 78 Year
  Sex: Female

DRUGS (6)
  1. CALCIUM [Concomitant]
     Active Substance: CALCIUM
  2. DIGIMERCK [Concomitant]
     Active Substance: DIGITOXIN
  3. PROLIA [Suspect]
     Active Substance: DENOSUMAB
     Indication: PRODUCT USED FOR UNKNOWN INDICATION
     Dosage: UNK
     Route: 065
     Dates: start: 201603
  4. XARELTO [Concomitant]
     Active Substance: RIVAROXABAN
  5. VITAMIN D3 [Concomitant]
     Active Substance: CHOLECALCIFEROL
  6. ULCOSAN                            /00513202/ [Concomitant]

REACTIONS (9)
  - Weight decreased [Unknown]
  - Feeling abnormal [Unknown]
  - Urinary tract infection [Unknown]
  - Tooth abscess [Unknown]
  - Paraesthesia [Unknown]
  - Malaise [Unknown]
  - Fatigue [Unknown]
  - Angina pectoris [Unknown]
  - Chills [Recovered/Resolved]
